FAERS Safety Report 25690567 (Version 1)
Quarter: 2025Q3

REPORT INFORMATION
  Report Type: Spontaneous
  Country: US (occurrence: US)
  Receive Date: 20250818
  Receipt Date: 20250818
  Transmission Date: 20251021
  Serious: Yes (Hospitalization, Other)
  Sender: EXELA PHARMA SCIENCES
  Company Number: US-EXELAPHARMA-2025EXLA00153

PATIENT
  Age: 22 Year
  Sex: Female

DRUGS (5)
  1. TRANEXAMIC ACID [Suspect]
     Active Substance: TRANEXAMIC ACID
     Indication: Pulmonary haemorrhage
  2. TRANEXAMIC ACID [Suspect]
     Active Substance: TRANEXAMIC ACID
     Indication: Prophylaxis
  3. CISPLATIN [Concomitant]
     Active Substance: CISPLATIN
  4. ETOPOSIDE [Concomitant]
     Active Substance: ETOPOSIDE
  5. Supportive fluid [Concomitant]

REACTIONS (3)
  - Drug ineffective for unapproved indication [Unknown]
  - Condition aggravated [Unknown]
  - Product use issue [Unknown]
